FAERS Safety Report 5690842-7 (Version None)
Quarter: 2008Q2

REPORT INFORMATION
  Report Type: 
  Country: None (occurrence: None)
  Receive Date: 20080401
  Receipt Date: 20080331
  Transmission Date: 20081010
  Serious: Yes (Other)
  Sender: FDA-Public Use
  Company Number: D0056687A

PATIENT
  Age: 44 Year
  Sex: Male
  Weight: 87 kg

DRUGS (5)
  1. MALARONE [Suspect]
     Route: 048
  2. DELIX [Suspect]
     Route: 048
  3. DOXYLAMINE [Suspect]
     Route: 048
  4. L THYROXINE [Suspect]
     Route: 048
  5. AMITRIPTYLINE HCL [Suspect]
     Route: 048

REACTIONS (4)
  - AGITATION [None]
  - INTENTIONAL OVERDOSE [None]
  - LOSS OF CONSCIOUSNESS [None]
  - SUICIDE ATTEMPT [None]
